FAERS Safety Report 9500487 (Version 2)
Quarter: 2014Q2

REPORT INFORMATION
  Report Type: Spontaneous
  Country: US (occurrence: US)
  Receive Date: 20130905
  Receipt Date: 20140404
  Transmission Date: 20141212
  Serious: Yes (Hospitalization, Other)
  Sender: FDA-Public Use
  Company Number: US-BAYER-2013-106969

PATIENT
  Age: 26 Year
  Sex: Female

DRUGS (14)
  1. YAZ [Suspect]
     Dosage: UNK
     Dates: start: 200706, end: 200809
  2. ALBUTEROL INHALER [Concomitant]
  3. ROBITUSSIN WITH CODEINE [Concomitant]
  4. ADENOSINE [Concomitant]
  5. CARDIZEM [Concomitant]
     Dosage: 25 MG, UNK
  6. CALCIUM CARBONATE [Concomitant]
  7. INSULIN [Concomitant]
  8. LEVOPHED [Concomitant]
  9. EPINEPHRINE [Concomitant]
  10. DILTIAZEM [Concomitant]
  11. PROTONIX [Concomitant]
  12. NORMAL SALINE [Concomitant]
  13. COMBIVENT [Concomitant]
  14. CEFAZOLIN [Concomitant]

REACTIONS (11)
  - Deep vein thrombosis [None]
  - Pulmonary embolism [None]
  - Injury [None]
  - Pain [None]
  - General physical health deterioration [None]
  - Anxiety [None]
  - Emotional distress [None]
  - Pain [None]
  - Pelvic venous thrombosis [None]
  - Thrombophlebitis superficial [None]
  - Deep vein thrombosis [None]
